FAERS Safety Report 11423443 (Version 1)
Quarter: 2015Q3

REPORT INFORMATION
  Report Type: Spontaneous
  Country: US (occurrence: US)
  Receive Date: 20150827
  Receipt Date: 20150827
  Transmission Date: 20151125
  Serious: Yes (Hospitalization, Other)
  Sender: FDA-Public Use
  Company Number: US-ASTRAZENECA-2015SE81768

PATIENT
  Age: 20 Year
  Sex: Female
  Weight: 59 kg

DRUGS (28)
  1. ACYCLOVIR. [Concomitant]
     Active Substance: ACYCLOVIR
     Indication: PYREXIA
     Route: 065
  2. OXYCODONE [Concomitant]
     Active Substance: OXYCODONE
     Indication: PAIN
     Route: 065
  3. LACTULOSE. [Concomitant]
     Active Substance: LACTULOSE
     Dosage: A FEW TABLESPOONS EVERY FEW DAYS
     Route: 065
     Dates: start: 2014
  4. ZANTAC [Concomitant]
     Active Substance: RANITIDINE HYDROCHLORIDE
     Indication: DYSPEPSIA
     Route: 048
  5. ASPIRIN. [Concomitant]
     Active Substance: ASPIRIN
     Indication: HEADACHE
     Route: 065
  6. AVINZA [Concomitant]
     Active Substance: MORPHINE SULFATE
     Indication: PAIN
     Route: 065
  7. OMEPRAZOLE. [Suspect]
     Active Substance: OMEPRAZOLE
     Indication: DYSPEPSIA
     Route: 048
  8. GENERIC FOR RITALIN [Concomitant]
     Indication: ASTHENIA
     Route: 065
     Dates: start: 2013
  9. NEXIUM [Suspect]
     Active Substance: ESOMEPRAZOLE MAGNESIUM
     Indication: DYSPEPSIA
     Route: 048
  10. PRILOSEC OTC [Suspect]
     Active Substance: OMEPRAZOLE MAGNESIUM
     Indication: GASTROOESOPHAGEAL REFLUX DISEASE
     Route: 048
  11. SYNTHROID [Concomitant]
     Active Substance: LEVOTHYROXINE SODIUM
     Indication: THYROID DISORDER
     Route: 065
  12. OXYCODONE [Concomitant]
     Active Substance: OXYCODONE
     Indication: PAIN
     Route: 065
  13. VALIUM [Concomitant]
     Active Substance: DIAZEPAM
     Indication: MUSCLE SPASMS
     Dosage: 10 MG, THREE TIMES DAILY AS NEEDED
     Route: 065
  14. MORPHINE IMMEDIATE RELEASE [Concomitant]
     Indication: PAIN
     Route: 065
  15. PROBIOTICS [Concomitant]
     Active Substance: PROBIOTICS NOS
     Route: 065
  16. PRILOSEC OTC [Suspect]
     Active Substance: OMEPRAZOLE MAGNESIUM
     Indication: DYSPEPSIA
     Route: 048
  17. LEXAPRO [Concomitant]
     Active Substance: ESCITALOPRAM OXALATE
     Indication: DEPRESSION
     Route: 065
  18. SENNA S [Concomitant]
     Active Substance: DOCUSATE SODIUM\SENNA LEAF
     Indication: FAECES HARD
     Dosage: 22 PILLS EVERY COUPLE OF DAYS
     Route: 048
  19. OXYCODONE [Concomitant]
     Active Substance: OXYCODONE
     Indication: PAIN
     Route: 065
  20. HAIR SKIN AND NAILS VITAMIN CONTAINING B VITAMINS, ZINC AND BIOTIN [Concomitant]
     Route: 048
  21. ASTAXANTHIN [Concomitant]
     Indication: MINERAL SUPPLEMENTATION
     Route: 048
  22. ASTAXANTHIN [Concomitant]
     Indication: VISUAL IMPAIRMENT
     Route: 048
  23. OMEPRAZOLE. [Suspect]
     Active Substance: OMEPRAZOLE
     Indication: GASTROOESOPHAGEAL REFLUX DISEASE
     Route: 048
  24. ASPIRIN. [Concomitant]
     Active Substance: ASPIRIN
     Indication: HEADACHE
     Route: 065
  25. NEXIUM [Suspect]
     Active Substance: ESOMEPRAZOLE MAGNESIUM
     Indication: GASTROOESOPHAGEAL REFLUX DISEASE
     Route: 048
  26. CITALOPRAM [Concomitant]
     Active Substance: CITALOPRAM HYDROBROMIDE
     Indication: DEPRESSION
     Route: 065
  27. PROVIGIL [Concomitant]
     Active Substance: MODAFINIL
     Indication: ASTHENIA
     Route: 065
  28. CALCIUM [Concomitant]
     Active Substance: CALCIUM
     Indication: MINERAL SUPPLEMENTATION
     Route: 065

REACTIONS (24)
  - Ligament rupture [Unknown]
  - Epstein-Barr virus infection [Unknown]
  - Depression [Unknown]
  - Neck pain [Unknown]
  - Off label use [Unknown]
  - Constipation [Unknown]
  - Headache [Unknown]
  - Gallbladder disorder [Unknown]
  - Joint dislocation [Unknown]
  - Impatience [Unknown]
  - General physical health deterioration [Unknown]
  - Fibromyalgia [Unknown]
  - Pyrexia [Unknown]
  - Fatigue [Unknown]
  - Drug ineffective [Unknown]
  - Musculoskeletal discomfort [Unknown]
  - Malaise [Unknown]
  - Malignant melanoma [Unknown]
  - Back pain [Unknown]
  - Feeling jittery [Unknown]
  - Dyspepsia [Unknown]
  - Weight decreased [Unknown]
  - Road traffic accident [Unknown]
  - Feeling abnormal [Unknown]

NARRATIVE: CASE EVENT DATE: 1980
